FAERS Safety Report 8112621-3 (Version None)
Quarter: 2012Q1

REPORT INFORMATION
  Report Type: 
  Country: None (occurrence: None)
  Receive Date: 20120203
  Receipt Date: 20120202
  Transmission Date: 20120608
  Serious: Yes (Other)
  Sender: FDA-Public Use
  Company Number: DE-AMGEN-DEUSP2012000527

PATIENT
  Age: 61 Year
  Sex: Female

DRUGS (5)
  1. CALCIUM ACETATE [Concomitant]
     Indication: HYPOCALCAEMIA
     Dosage: 500 MG, BID
     Route: 048
     Dates: end: 20111221
  2. VITAMIN D [Concomitant]
     Indication: HYPOCALCAEMIA
     Dosage: 40000 IU, QWK
  3. CALCITROL                          /00508501/ [Concomitant]
     Dosage: 0.5 MUG, QD
  4. PROLIA [Suspect]
     Indication: PRODUCT USED FOR UNKNOWN INDICATION
     Dosage: 60 MG, UNK
     Dates: start: 20111205
  5. CALCIUM ACETATE [Concomitant]
     Dosage: 500 MG, QID
     Route: 048
     Dates: start: 20111221

REACTIONS (4)
  - HYPOCALCAEMIA [None]
  - TETANY [None]
  - BACK PAIN [None]
  - BONE PAIN [None]
